FAERS Safety Report 16422059 (Version 1)
Quarter: 2019Q2

REPORT INFORMATION
  Report Type: Spontaneous
  Country: US (occurrence: US)
  Receive Date: 20190612
  Receipt Date: 20190612
  Transmission Date: 20190711
  Serious: Yes (Other)
  Sender: FDA-Public Use
  Company Number: US-GLAXOSMITHKLINE-US2019AMR104940

PATIENT

DRUGS (1)
  1. BENLYSTA [Suspect]
     Active Substance: BELIMUMAB
     Indication: SYSTEMIC LUPUS ERYTHEMATOSUS

REACTIONS (6)
  - Pulmonary congestion [Unknown]
  - Pain [Unknown]
  - Rash pruritic [Unknown]
  - Skin burning sensation [Unknown]
  - Rash erythematous [Unknown]
  - Eye irritation [Unknown]
